FAERS Safety Report 5735947-7 (Version None)
Quarter: 2008Q2

REPORT INFORMATION
  Report Type: 
  Country: None (occurrence: None)
  Receive Date: 20080509
  Receipt Date: 20080501
  Transmission Date: 20081010
  Serious: Yes (Hospitalization)
  Sender: FDA-Public Use
  Company Number: 163-21880-08050068

PATIENT
  Age: 84 Year
  Sex: Male

DRUGS (8)
  1. REVLIMID [Suspect]
     Indication: MULTIPLE MYELOMA
     Dosage: 15 MG, Q21 DAYS Q28 DAYS, ORAL : 25 MG, 1 IN 1 D, ORAL
     Route: 048
     Dates: start: 20080121, end: 20080123
  2. REVLIMID [Suspect]
     Indication: MULTIPLE MYELOMA
     Dosage: 15 MG, Q21 DAYS Q28 DAYS, ORAL : 25 MG, 1 IN 1 D, ORAL
     Route: 048
     Dates: start: 20071207
  3. LEXAPRO [Concomitant]
  4. AMBIEN [Concomitant]
  5. NAMENDA [Concomitant]
  6. ARICEPT [Concomitant]
  7. CLARITIN [Concomitant]
  8. ASPIRIN [Concomitant]

REACTIONS (9)
  - CONFUSIONAL STATE [None]
  - DECREASED APPETITE [None]
  - DISORIENTATION [None]
  - GAIT DISTURBANCE [None]
  - HALLUCINATION [None]
  - LETHARGY [None]
  - MENTAL STATUS CHANGES [None]
  - PYREXIA [None]
  - RASH [None]
